FAERS Safety Report 25366837 (Version 2)
Quarter: 2025Q4

REPORT INFORMATION
  Report Type: Spontaneous
  Country: US (occurrence: US)
  Receive Date: 20250528
  Receipt Date: 20251114
  Transmission Date: 20260117
  Serious: Yes (Other)
  Sender: COOPERSURGICAL
  Company Number: US-COOPERSURGICAL, INC.-2025CPS004214

PATIENT
  Age: 30 Year
  Sex: Female
  Weight: 72.562 kg

DRUGS (1)
  1. PARAGARD T 380A [Suspect]
     Active Substance: COPPER
     Indication: Contraception
     Dosage: UNK
     Route: 015
     Dates: start: 20130910

REACTIONS (13)
  - Infertility female [Unknown]
  - Reproductive complication associated with device [Unknown]
  - Uterine polyp [Not Recovered/Not Resolved]
  - Uterine polypectomy [Recovered/Resolved]
  - Abortion spontaneous [Recovered/Resolved]
  - Foreign body in reproductive tract [Unknown]
  - Complication of device removal [Unknown]
  - Device material issue [Unknown]
  - Emotional distress [Not Recovered/Not Resolved]
  - Back pain [Recovered/Resolved]
  - Abnormal uterine bleeding [Unknown]
  - Discomfort [Unknown]
  - Heavy menstrual bleeding [Recovered/Resolved]

NARRATIVE: CASE EVENT DATE: 20131101
